FAERS Safety Report 14988206 (Version 1)
Quarter: 2018Q2

REPORT INFORMATION
  Report Type: Spontaneous
  Country: US (occurrence: US)
  Receive Date: 20180608
  Receipt Date: 20180608
  Transmission Date: 20180711
  Serious: No
  Sender: FDA-Public Use
  Company Number: US-PFIZER INC-2018230991

PATIENT
  Sex: Female

DRUGS (1)
  1. ADVIL MIGRAINE [Suspect]
     Active Substance: IBUPROFEN
     Indication: MIGRAINE
     Dosage: 4 DF, 1X/DAY (CONSUMED 4 ADVIL MIGRAINES AT ONE TIME IN ONE DAY)

REACTIONS (2)
  - Intentional product use issue [Unknown]
  - Drug ineffective [Unknown]
